FAERS Safety Report 4323348-8 (Version None)
Quarter: 2004Q1

REPORT INFORMATION
  Report Type: 
  Country: None (occurrence: None)
  Receive Date: 20040324
  Receipt Date: 20040324
  Transmission Date: 20041129
  Serious: Yes (Life-Threatening, Disabling, Other)
  Sender: FDA-Public Use
  Company Number: None

PATIENT
  Age: 37 Year
  Sex: Male
  Weight: 81.6475 kg

DRUGS (6)
  1. MEPROBAMATE [Suspect]
     Indication: DYSGEUSIA
     Dosage: 1 DAY ORAL
     Route: 048
     Dates: start: 19850201, end: 19850215
  2. MEPROBAMATE [Suspect]
     Indication: HYPOAESTHESIA
     Dosage: 1 DAY ORAL
     Route: 048
     Dates: start: 19850201, end: 19850215
  3. MEPROBAMATE [Suspect]
     Indication: PALPITATIONS
     Dosage: 1 DAY ORAL
     Route: 048
     Dates: start: 19850201, end: 19850215
  4. ALPRAZOLAM [Suspect]
     Indication: DYSGEUSIA
     Dosage: 1 DAY ORAL
     Route: 048
     Dates: start: 19850216, end: 19850510
  5. ALPRAZOLAM [Suspect]
     Indication: HYPOAESTHESIA
     Dosage: 1 DAY ORAL
     Route: 048
     Dates: start: 19850216, end: 19850510
  6. ALPRAZOLAM [Suspect]
     Indication: PALPITATIONS
     Dosage: 1 DAY ORAL
     Route: 048
     Dates: start: 19850216, end: 19850510

REACTIONS (15)
  - ANXIETY [None]
  - BLINDNESS [None]
  - CONFUSIONAL STATE [None]
  - DEPRESSION [None]
  - DISTURBANCE IN ATTENTION [None]
  - DRUG DEPENDENCE [None]
  - FEELING ABNORMAL [None]
  - HEADACHE [None]
  - INSOMNIA [None]
  - NERVOUSNESS [None]
  - PHOTOPHOBIA [None]
  - SOMNOLENCE [None]
  - SUICIDAL IDEATION [None]
  - VISION BLURRED [None]
  - VISUAL ACUITY REDUCED [None]
